FAERS Safety Report 10635581 (Version 3)
Quarter: 2015Q1

REPORT INFORMATION
  Report Type: Spontaneous
  Country: US (occurrence: US)
  Receive Date: 20141205
  Receipt Date: 20150210
  Transmission Date: 20150720
  Serious: No
  Sender: FDA-Public Use
  Company Number: US-009507513-1412USA001685

PATIENT
  Sex: Female

DRUGS (3)
  1. CLARITIN [Suspect]
     Active Substance: LORATADINE
     Dosage: 10 MG, QD
     Route: 048
  2. CLARITIN [Suspect]
     Active Substance: LORATADINE
     Dosage: 10 MG, QD
     Route: 048
  3. CLARITIN [Suspect]
     Active Substance: LORATADINE
     Indication: HYPERSENSITIVITY
     Dosage: 10 MG, QD
     Route: 048

REACTIONS (4)
  - Swollen tongue [Unknown]
  - Nasal dryness [Unknown]
  - Ear infection [Unknown]
  - Dry mouth [Unknown]
